FAERS Safety Report 5589437-5 (Version None)
Quarter: 2008Q1

REPORT INFORMATION
  Report Type: 
  Country: None (occurrence: None)
  Receive Date: 20080109
  Receipt Date: 20080109
  Transmission Date: 20080703
  Serious: Yes (Other)
  Sender: FDA-Public Use
  Company Number: None

PATIENT
  Sex: Male
  Weight: 74.8435 kg

DRUGS (1)
  1. CHANTIX [Suspect]
     Indication: SMOKING CESSATION THERAPY
     Dosage: 1MG 2 A DAY PO
     Route: 048
     Dates: start: 20071207, end: 20080106

REACTIONS (4)
  - DEPRESSION [None]
  - SUICIDAL IDEATION [None]
  - THINKING ABNORMAL [None]
  - VISION BLURRED [None]
